FAERS Safety Report 7374565-4 (Version None)
Quarter: 2011Q1

REPORT INFORMATION
  Report Type: 
  Country: None (occurrence: None)
  Receive Date: 20110325
  Receipt Date: 20100409
  Transmission Date: 20110831
  Serious: No
  Sender: FDA-Public Use
  Company Number: US-MYLANLABS-2010S1004883

PATIENT
  Sex: Female

DRUGS (4)
  1. FENTANYL-100 [Suspect]
     Indication: SPINAL COLUMN STENOSIS
     Dosage: Q72HR
     Route: 062
     Dates: start: 20100201
  2. AVAPRO [Concomitant]
     Indication: HYPERTENSION
     Route: 048
  3. ASPIRIN [Concomitant]
     Route: 048
  4. HYDROCHLOROTHIAZIDE [Concomitant]
     Indication: HYPERTENSION
     Route: 048

REACTIONS (3)
  - FLUSHING [None]
  - APPLICATION SITE PRURITUS [None]
  - APPLICATION SITE RASH [None]
